FAERS Safety Report 12717272 (Version 1)
Quarter: 2016Q3

REPORT INFORMATION
  Report Type: Spontaneous
  Country: US (occurrence: US)
  Receive Date: 20160906
  Receipt Date: 20160906
  Transmission Date: 20161109
  Serious: No
  Sender: FDA-Public Use
  Company Number: US-AMNEAL PHARMACEUTICALS-2016AMN00159

PATIENT
  Sex: Male

DRUGS (27)
  1. ESTROGEN CONJUGATED 0.625MG/G VAGINAL CREAM [Concomitant]
     Indication: VULVOVAGINITIS
     Dosage: 0.625 MG/G, 2X/WEEK
     Route: 067
  2. HYDROCHLORTHIAZIDE [Concomitant]
     Active Substance: HYDROCHLOROTHIAZIDE
     Indication: HYPERTENSION
     Dosage: 12.5 MG, 1X/DAY
     Route: 048
  3. FOLIC ACID. [Suspect]
     Active Substance: FOLIC ACID
     Indication: POLYARTHRITIS
     Dosage: ONE TABLET, FIVE TIMES A DAY
     Route: 048
  4. DICLOFENAC SODIUM. [Concomitant]
     Active Substance: DICLOFENAC SODIUM
     Indication: OSTEOARTHRITIS
     Dosage: 1 %, 4X/DAY
     Route: 061
  5. KETOTIFEN [Concomitant]
     Active Substance: KETOTIFEN
     Indication: CONJUNCTIVITIS ALLERGIC
     Dosage: UNK, 2X/DAY(1 DROP TO BOTH EYES TWICE DAILY)
  6. TRIAMCINOLONE NASAL SOLUTION [Concomitant]
     Indication: RHINITIS ALLERGIC
     Dosage: UNK, 1X/DAY(2 SPRAYS TO EACH NOSTRIL DAILY)
     Route: 045
  7. LIPITOR [Concomitant]
     Active Substance: ATORVASTATIN CALCIUM
     Indication: HYPERLIPIDAEMIA
     Dosage: 20 MG, 1X/DAY
     Route: 048
  8. AZELASTINE [Concomitant]
     Active Substance: AZELASTINE
     Indication: RHINITIS ALLERGIC
     Dosage: 137 MCG, UNK(2 SPRAYS TO EACH NOSTRIL TWICE DAILY AS NEEDED)
     Route: 045
  9. CEPHALEXIN. [Concomitant]
     Active Substance: CEPHALEXIN
     Indication: PAIN IN EXTREMITY
     Dosage: 1000 MG, 2X/DAY
     Route: 048
  10. DICLOFENAC SODIUM. [Concomitant]
     Active Substance: DICLOFENAC SODIUM
     Indication: ARTHRALGIA
  11. METHOTREXATE SODIUM. [Concomitant]
     Active Substance: METHOTREXATE SODIUM
     Indication: ARTHROPATHY
     Dosage: 10 MG, 1X/WEEK
  12. VENLAFAXINE HCL [Concomitant]
     Active Substance: VENLAFAXINE HYDROCHLORIDE
     Indication: OSTEOARTHRITIS
     Dosage: 225 MG, 1X/DAY
  13. FOLIC ACID. [Suspect]
     Active Substance: FOLIC ACID
     Indication: OFF LABEL USE
  14. CYANOCOBALAMIN SL 1000MCG SUBL TAB [Concomitant]
     Indication: MEMORY IMPAIRMENT
     Dosage: 1000 MCG, 1X/DAY
     Route: 060
  15. HYDROCODONE/ACETAMINOPHEN [Concomitant]
     Active Substance: ACETAMINOPHEN\HYDROCODONE
     Indication: LIGAMENT SPRAIN
     Route: 048
  16. HYDROXYCHLOROQUINE [Concomitant]
     Active Substance: HYDROXYCHLOROQUINE
     Indication: ARTHROPATHY
     Dosage: 200 MG, 1X/DAY
     Route: 048
  17. LORATADINE. [Concomitant]
     Active Substance: LORATADINE
     Indication: RHINITIS ALLERGIC
     Dosage: 10 MG, 1X/DAY
     Route: 048
  18. DILTIAZEM 24 HR-ER COATED BEEDS [Concomitant]
     Indication: SUPRAVENTRICULAR TACHYCARDIA
     Dosage: 240 MG, 1X/DAY
     Route: 048
  19. HYDROCODONE/ACETAMINOPHEN [Concomitant]
     Active Substance: ACETAMINOPHEN\HYDROCODONE
     Indication: BACK PAIN
  20. HYDROCODONE/ACETAMINOPHEN [Concomitant]
     Active Substance: ACETAMINOPHEN\HYDROCODONE
     Indication: ARTHRALGIA
  21. CIPROFLOXACIN. [Concomitant]
     Active Substance: CIPROFLOXACIN
     Dosage: 500 MG, 2X/DAY
     Route: 048
  22. LEVOTHYROXINE. [Concomitant]
     Active Substance: LEVOTHYROXINE
     Indication: HYPOTHYROIDISM
     Dosage: 112 MCG, 1X/DAY(1 HOUR BEFORE BREAKFAST)
     Route: 048
  23. SILVER SULFADIAZINE. [Concomitant]
     Active Substance: SILVER SULFADIAZINE
     Indication: SKIN ULCER
     Dosage: 1 %, UNK(APPLY DAILY TO THE AFFECTED AREA)
  24. ESTROGEN CONJUGATED 0.625MG/G VAGINAL CREAM [Concomitant]
     Indication: OESTROGEN DEFICIENCY
  25. LIDOCAINE. [Concomitant]
     Active Substance: LIDOCAINE
     Indication: GASTROINTESTINAL DISORDER
     Dosage: 5 %, 1X/DAY(1 PATCH ON FOR 12 HOURS DAILY)
     Route: 061
  26. LYRICA [Concomitant]
     Active Substance: PREGABALIN
     Indication: RHEUMATIC DISORDER
     Dosage: 100 MG, 3X/DAY
     Route: 048
  27. LYRICA [Concomitant]
     Active Substance: PREGABALIN
     Indication: FIBROMYALGIA

REACTIONS (1)
  - Off label use [Unknown]
